FAERS Safety Report 9518046 (Version 1)
Quarter: 2013Q3

REPORT INFORMATION
  Report Type: Spontaneous
  Country: US (occurrence: US)
  Receive Date: 20130912
  Receipt Date: 20130912
  Transmission Date: 20140515
  Serious: No
  Sender: FDA-Public Use
  Company Number: US-PFIZER INC-2013259684

PATIENT
  Age: 57 Year
  Sex: Female

DRUGS (15)
  1. XELJANZ [Suspect]
     Indication: RHEUMATOID ARTHRITIS
     Dosage: 5 MG, 2X/DAY
     Route: 048
     Dates: start: 201307, end: 20130806
  2. CYMBALTA [Concomitant]
     Dosage: UNK
  3. XANAX [Concomitant]
     Dosage: UNK
  4. PLAQUENIL [Concomitant]
     Dosage: UNK
  5. ANTIVERT [Concomitant]
     Dosage: UNK
  6. METHOTREXATE [Concomitant]
     Dosage: UNK
  7. LYRICA [Concomitant]
     Dosage: UNK
  8. SIMVASTATIN [Concomitant]
     Dosage: UNK
  9. FOLIC ACID [Concomitant]
     Dosage: UNK
  10. LISINOPRIL W/HYDROCHLOROTHIAZIDE [Concomitant]
     Dosage: UNK
  11. OMEPRAZOLE DR [Concomitant]
     Dosage: UNK
  12. SULFASALAZINE [Concomitant]
     Dosage: UNK
  13. CALCIUM WITH VITAMIN D [Concomitant]
     Dosage: UNK
  14. OMNARIS NASAL SPRAY [Concomitant]
     Dosage: UNK
  15. EVOXAC [Concomitant]
     Dosage: UNK

REACTIONS (6)
  - Headache [Recovered/Resolved]
  - Abnormal sensation in eye [Recovered/Resolved]
  - Local swelling [Recovered/Resolved]
  - Pain in extremity [Recovered/Resolved]
  - Feeling abnormal [Recovered/Resolved]
  - Pain [Recovered/Resolved]
